FAERS Safety Report 12888043 (Version 1)
Quarter: 2016Q4

REPORT INFORMATION
  Report Type: Spontaneous
  Country: GB (occurrence: GB)
  Receive Date: 20161027
  Receipt Date: 20161027
  Transmission Date: 20170207
  Serious: Yes (Other)
  Sender: FDA-Public Use
  Company Number: GB-ABBVIE-16K-167-1762818-00

PATIENT
  Age: 55 Year
  Sex: Male
  Weight: 98.6 kg

DRUGS (3)
  1. HUMIRA [Suspect]
     Active Substance: ADALIMUMAB
     Route: 058
     Dates: start: 201609, end: 201609
  2. HUMIRA [Suspect]
     Active Substance: ADALIMUMAB
     Dosage: DURATION 28 DAYS
     Route: 058
     Dates: start: 2016, end: 20161003
  3. HUMIRA [Suspect]
     Active Substance: ADALIMUMAB
     Indication: CROHN^S DISEASE
     Route: 058
     Dates: start: 20160905, end: 20160905

REACTIONS (5)
  - Dysgeusia [Recovered/Resolved]
  - Feeling abnormal [Recovered/Resolved]
  - Anaphylactic reaction [Recovered/Resolved]
  - Oropharyngeal discomfort [Recovered/Resolved]
  - Erythema [Recovered/Resolved]

NARRATIVE: CASE EVENT DATE: 20161003
